FAERS Safety Report 23734074 (Version 3)
Quarter: 2024Q2

REPORT INFORMATION
  Report Type: Spontaneous
  Country: US (occurrence: US)
  Receive Date: 20240412
  Receipt Date: 20240529
  Transmission Date: 20240716
  Serious: Yes (Life-Threatening, Hospitalization, Other)
  Sender: FDA-Public Use
  Company Number: US-BoehringerIngelheim-2024-BI-021455

PATIENT
  Age: 51 Year
  Sex: Female
  Weight: 170 kg

DRUGS (4)
  1. JARDIANCE [Suspect]
     Active Substance: EMPAGLIFLOZIN
     Indication: Glucose tolerance impaired
     Dates: start: 202307
  2. JARDIANCE [Suspect]
     Active Substance: EMPAGLIFLOZIN
     Dates: end: 202311
  3. Estridol [Concomitant]
     Indication: Product used for unknown indication
     Dosage: (FORMULATION: PATCH)
  4. PROGESTERONE [Concomitant]
     Active Substance: PROGESTERONE
     Indication: Product used for unknown indication

REACTIONS (5)
  - Groin infection [Not Recovered/Not Resolved]
  - Ketoacidosis [Not Recovered/Not Resolved]
  - Sepsis [Not Recovered/Not Resolved]
  - Necrotising fasciitis [Unknown]
  - Off label use [Unknown]

NARRATIVE: CASE EVENT DATE: 20231103
